FAERS Safety Report 9812798 (Version 3)
Quarter: 2014Q2

REPORT INFORMATION
  Report Type: Spontaneous
  Country: IT (occurrence: IT)
  Receive Date: 20140113
  Receipt Date: 20140429
  Transmission Date: 20141212
  Serious: Yes (Other)
  Sender: FDA-Public Use
  Company Number: IT-RANBAXY-2013RR-77066

PATIENT
  Age: 24 Year
  Sex: Female

DRUGS (3)
  1. CIPROFLOXACIN [Suspect]
     Indication: DRUG ABUSE
     Dosage: 2500 MG COMPLETE
     Route: 048
     Dates: start: 20131210, end: 20131210
  2. LANSOX [Suspect]
     Indication: DRUG ABUSE
     Dosage: 420 MG COMPLETE
     Route: 048
     Dates: start: 20131210, end: 20131210
  3. BRUFEN [Suspect]
     Indication: DRUG ABUSE
     Dosage: 18 MG COMPLETE
     Route: 048
     Dates: start: 20131210, end: 20131210

REACTIONS (3)
  - Abdominal pain upper [Recovering/Resolving]
  - Metabolic acidosis [Recovering/Resolving]
  - Renal failure [Recovering/Resolving]
